FAERS Safety Report 22162210 (Version 4)
Quarter: 2023Q2

REPORT INFORMATION
  Report Type: Report from Study
  Country: ES (occurrence: ES)
  Receive Date: 20230331
  Receipt Date: 20230614
  Transmission Date: 20230722
  Serious: Yes (Hospitalization)
  Sender: FDA-Public Use
  Company Number: ES-JNJFOC-20230377833

PATIENT
  Age: 53 Year
  Sex: Female
  Weight: 64.3 kg

DRUGS (9)
  1. TRABECTEDIN [Suspect]
     Active Substance: TRABECTEDIN
     Indication: Sarcoma uterus
     Dosage: CYCLE 1
     Route: 042
     Dates: start: 20230102
  2. TRABECTEDIN [Suspect]
     Active Substance: TRABECTEDIN
     Dosage: CYCLE 4
     Route: 042
     Dates: start: 20230306
  3. DEXAMETHASONE [Concomitant]
     Active Substance: DEXAMETHASONE
     Indication: Premedication
  4. LEVOTHYROXINE SODIUM [Concomitant]
     Active Substance: LEVOTHYROXINE SODIUM
     Indication: Hypothyroidism
  5. OMEPRAZOLE [Concomitant]
     Active Substance: OMEPRAZOLE
  6. ZOLPIDEM [Concomitant]
     Active Substance: ZOLPIDEM TARTRATE
  7. ACETAMINOPHEN [Concomitant]
     Active Substance: ACETAMINOPHEN
  8. CETIRIZINE [Concomitant]
     Active Substance: CETIRIZINE HYDROCHLORIDE
  9. EZETIMIBE\SIMVASTATIN [Concomitant]
     Active Substance: EZETIMIBE\SIMVASTATIN
     Dosage: 20/10

REACTIONS (2)
  - Catheter site infection [Recovered/Resolved]
  - Febrile neutropenia [Recovered/Resolved]

NARRATIVE: CASE EVENT DATE: 20230317
